FAERS Safety Report 13993658 (Version 3)
Quarter: 2018Q1

REPORT INFORMATION
  Report Type: Spontaneous
  Country: PT (occurrence: PT)
  Receive Date: 20170920
  Receipt Date: 20180223
  Transmission Date: 20180508
  Serious: Yes (Other)
  Sender: FDA-Public Use
  Company Number: PT-BAYER-2017-178582

PATIENT
  Age: 97 Year
  Sex: Female

DRUGS (7)
  1. STATIN [Concomitant]
     Active Substance: UNSPECIFIED INGREDIENT
  2. ASPIRIN. [Suspect]
     Active Substance: ASPIRIN
     Indication: ANTIPLATELET THERAPY
  3. NYSTATIN. [Concomitant]
     Active Substance: NYSTATIN
     Indication: PRODUCT USED FOR UNKNOWN INDICATION
     Route: 065
  4. ACETYLSALICYLIC ACID({=100 MG) [Suspect]
     Active Substance: ASPIRIN
     Indication: ANTIPLATELET THERAPY
  5. ASPIRIN. [Suspect]
     Active Substance: ASPIRIN
     Indication: ANTIPLATELET THERAPY
  6. ACECLOFENAC [Suspect]
     Active Substance: ACECLOFENAC
     Indication: ARTHRALGIA
  7. HYDROCHLOROTHIAZIDE. [Concomitant]
     Active Substance: HYDROCHLOROTHIAZIDE
     Indication: PRODUCT USED FOR UNKNOWN INDICATION
     Route: 065

REACTIONS (9)
  - Skin wound [Recovered/Resolved]
  - Blood blister [Recovered/Resolved]
  - Skin ulcer [Recovered/Resolved]
  - Self-medication [Unknown]
  - Haematoma [Recovered/Resolved]
  - Renal impairment [Recovered/Resolved]
  - Potentiating drug interaction [None]
  - Hyperkalaemia [Recovered/Resolved]
  - Increased tendency to bruise [Recovered/Resolved]
